FAERS Safety Report 8271007-1 (Version None)
Quarter: 2012Q2

REPORT INFORMATION
  Report Type: 
  Country: None (occurrence: None)
  Receive Date: 20120410
  Receipt Date: 20120326
  Transmission Date: 20120825
  Serious: Yes (Death, Other)
  Sender: FDA-Public Use
  Company Number: US-ROCHE-1055460

PATIENT

DRUGS (1)
  1. AVASTIN [Suspect]
     Indication: OVARIAN CANCER RECURRENT
     Route: 065

REACTIONS (7)
  - GASTROINTESTINAL TOXICITY [None]
  - FISTULA [None]
  - PULMONARY EMBOLISM [None]
  - INTESTINAL PERFORATION [None]
  - HYPERTENSION [None]
  - EPISTAXIS [None]
  - GASTROINTESTINAL NECROSIS [None]
